FAERS Safety Report 4462559-8 (Version None)
Quarter: 2004Q3

REPORT INFORMATION
  Report Type: 
  Country: None (occurrence: None)
  Receive Date: 20040929
  Receipt Date: 20040914
  Transmission Date: 20050211
  Serious: Yes (Hospitalization)
  Sender: FDA-Public Use
  Company Number: FR-MERCK-0409FRA00051

PATIENT
  Age: 56 Year
  Sex: Male

DRUGS (6)
  1. CELECOXIB [Suspect]
     Indication: INTERVERTEBRAL DISC PROTRUSION
     Route: 048
     Dates: start: 20030919, end: 20031002
  2. COZAAR [Suspect]
     Indication: HYPERTENSION
     Route: 048
     Dates: start: 20030101, end: 20031004
  3. NAPROXEN [Concomitant]
     Indication: INTERVERTEBRAL DISC PROTRUSION
     Route: 048
     Dates: start: 20030922, end: 20031004
  4. PIROXICAM [Suspect]
     Indication: INTERVERTEBRAL DISC PROTRUSION
     Route: 048
     Dates: start: 20030929, end: 20031002
  5. PREDNISONE [Concomitant]
     Indication: INTERVERTEBRAL DISC PROTRUSION
     Route: 048
     Dates: end: 20031004
  6. TETRAZEPAM [Concomitant]
     Indication: INTERVERTEBRAL DISC PROTRUSION
     Route: 048
     Dates: end: 20031004

REACTIONS (2)
  - PRURITUS [None]
  - RASH PUSTULAR [None]
